FAERS Safety Report 13466361 (Version 1)
Quarter: 2017Q2

REPORT INFORMATION
  Report Type: Spontaneous
  Country: US (occurrence: US)
  Receive Date: 20170421
  Receipt Date: 20170421
  Transmission Date: 20170830
  Serious: Yes (Disabling, Other)
  Sender: FDA-Public Use
  Company Number: US-BTG INTERNATIONAL LTD-BTG01232

PATIENT

DRUGS (7)
  1. EPINEPHRINE. [Concomitant]
     Active Substance: EPINEPHRINE
     Indication: PULSELESS ELECTRICAL ACTIVITY
     Dosage: 3 MG, UNK
  2. DIGIFAB [Suspect]
     Active Substance: OVINE DIGOXIN IMMUNE FAB
     Indication: TOXICITY TO VARIOUS AGENTS
     Dosage: 10 DF, UNK
  3. DIGOXIN. [Suspect]
     Active Substance: DIGOXIN
     Indication: PRODUCT USED FOR UNKNOWN INDICATION
  4. CALCIUM CHLORIDE. [Concomitant]
     Active Substance: CALCIUM CHLORIDE
     Indication: PULSELESS ELECTRICAL ACTIVITY
     Dosage: 1 G, UNK
  5. GLUCAGON. [Concomitant]
     Active Substance: GLUCAGON
     Indication: PULSELESS ELECTRICAL ACTIVITY
     Dosage: 5 MG, UNK
  6. NOREPINEPHRINE. [Concomitant]
     Active Substance: NOREPINEPHRINE
     Indication: PRODUCT USED FOR UNKNOWN INDICATION
  7. ALTEPLASE [Concomitant]
     Active Substance: ALTEPLASE
     Indication: PULSELESS ELECTRICAL ACTIVITY
     Dosage: 50 MG, UNK

REACTIONS (3)
  - Acute kidney injury [Recovered/Resolved]
  - Ventricular hypokinesia [Recovered/Resolved]
  - Disability [Not Recovered/Not Resolved]
